FAERS Safety Report 18972926 (Version 1)
Quarter: 2021Q1

REPORT INFORMATION
  Report Type: Other
  Country: GB (occurrence: GB)
  Receive Date: 20210305
  Receipt Date: 20210305
  Transmission Date: 20210420
  Serious: Yes (Other)
  Sender: FDA-Public Use
  Company Number: GB-MACLEODS PHARMA UK LTD-MAC2021030328

PATIENT

DRUGS (2)
  1. ARIPIPRAZOLE. [Suspect]
     Active Substance: ARIPIPRAZOLE
     Indication: ILL-DEFINED DISORDER
  2. ARIPIPRAZOLE. [Suspect]
     Active Substance: ARIPIPRAZOLE
     Indication: PSYCHOTIC DISORDER
     Dosage: UNK, 1 INJECTION, EVERY 4 WEEKS
     Route: 051
     Dates: start: 20180401, end: 20190311

REACTIONS (5)
  - Medication error [Unknown]
  - Binge eating [Unknown]
  - Compulsive shopping [Unknown]
  - Gambling [Unknown]
  - Disturbance in sexual arousal [Recovered/Resolved]
